FAERS Safety Report 6548717-7 (Version None)
Quarter: 2010Q1

REPORT INFORMATION
  Report Type: 
  Country: None (occurrence: None)
  Receive Date: 20100124
  Receipt Date: 20091030
  Transmission Date: 20100710
  Serious: No
  Sender: FDA-Public Use
  Company Number: US-ALLERGAN-0915056US

PATIENT
  Age: 62 Year
  Sex: Female

DRUGS (6)
  1. RESTASIS [Suspect]
     Indication: DRY EYE
     Dosage: 1 GTT, BID
     Route: 047
     Dates: start: 20091028
  2. TOPROL-XL [Concomitant]
  3. ALTACE [Concomitant]
  4. ALDACTONE [Concomitant]
  5. BONIVA [Concomitant]
  6. ASPIRIN [Concomitant]
     Dosage: ONE DAILY

REACTIONS (1)
  - BLOOD PRESSURE INCREASED [None]
